FAERS Safety Report 8677352 (Version 2)
Quarter: 2012Q4

REPORT INFORMATION
  Report Type: 
  Country: GB (occurrence: GB)
  Receive Date: 20120723
  Receipt Date: 20120904
  Transmission Date: 20130627
  Serious: Yes (Other)
  Sender: FDA-Public Use
  Company Number: GB-GENZYME-MOZO-1000711

PATIENT
  Age: 68 Year
  Sex: Female
  Weight: 70.5 kg

DRUGS (19)
  1. PLERIXAFOR [Suspect]
     Indication: ACUTE MYELOID LEUKAEMIA
     Dosage: 240 mcg/kg, qd
     Route: 058
     Dates: start: 20120514, end: 20120518
  2. EVOLTRA [Suspect]
     Indication: ACUTE MYELOID LEUKAEMIA
     Dosage: 33 mg, qd
     Route: 042
     Dates: start: 20120514, end: 20120518
  3. DAUNORUBICIN [Concomitant]
     Indication: ACUTE MYELOID LEUKAEMIA
     Dosage: 83 mg, qod
     Route: 042
     Dates: start: 20120514, end: 20120518
  4. QUININE SULPHATE [Concomitant]
     Indication: PRODUCT USED FOR UNKNOWN INDICATION
     Dosage: 300 mg, qd
     Route: 065
     Dates: start: 20120506
  5. BISOPROLOL [Concomitant]
     Indication: PRODUCT USED FOR UNKNOWN INDICATION
     Dosage: 5 mg, qd
     Dates: start: 20120503
  6. ACICLOVIR [Concomitant]
     Indication: PRODUCT USED FOR UNKNOWN INDICATION
     Dosage: 200 mg, qid
     Route: 065
     Dates: start: 20120503
  7. COLISTIN [Concomitant]
     Indication: INFECTION PROPHYLAXIS
     Dosage: 1.5 Other, tid
     Route: 065
     Dates: start: 20120503
  8. SENNA [Concomitant]
     Indication: LAXATIVE SUPPORTIVE CARE
     Dosage: 2 Other, bid
     Route: 065
     Dates: start: 20120505
  9. LANSOPRAZOLE [Concomitant]
     Indication: PROPHYLAXIS
     Dosage: 30 mg, qd
     Route: 065
     Dates: start: 20120502
  10. AMLODIPINE [Concomitant]
     Indication: HYPERTENSION
     Dosage: 5 mg, qd
     Route: 065
     Dates: start: 20120502
  11. RAMIPRIL [Concomitant]
     Indication: HYPERTENSION
     Dosage: 10 mg, qd
     Route: 065
     Dates: start: 20120502
  12. EZETIMIBE [Concomitant]
     Indication: DYSLIPIDAEMIA
     Dosage: 10 mg, qd
     Route: 065
     Dates: start: 20120502
  13. OMACOR [Concomitant]
     Indication: DYSLIPIDAEMIA
     Dosage: 2000 mg, qd
     Route: 065
     Dates: start: 20120502
  14. CYCLIZINE [Concomitant]
     Indication: NAUSEA
     Dosage: 50 mg, prn
     Route: 065
     Dates: start: 20120515
  15. MEBEVERINE [Concomitant]
     Indication: GASTROINTESTINAL PAIN
     Dosage: 135 mg, tid
     Route: 065
     Dates: start: 20120502
  16. MEBEVERINE [Concomitant]
     Indication: ABDOMINAL DISCOMFORT
  17. CO-TRIMOXAZOLE [Concomitant]
     Indication: PROPHYLAXIS
     Dosage: 960 mg, bid
     Route: 065
     Dates: start: 20120514
  18. AMBISOME [Concomitant]
     Indication: ANTIFUNGAL PROPHYLAXIS
     Dosage: 100 mg, qd
     Route: 065
     Dates: start: 20120521, end: 20120523
  19. ONDANSETRON [Concomitant]
     Indication: NAUSEA
     Dosage: 8 mg, bid
     Route: 065
     Dates: start: 20120515, end: 20120524

REACTIONS (10)
  - Hypophosphataemia [Recovered/Resolved]
  - Hyponatraemia [Recovered/Resolved]
  - Hyponatraemia [Recovered/Resolved]
  - Blood alkaline phosphatase increased [Not Recovered/Not Resolved]
  - Hypokalaemia [Recovered/Resolved]
  - Hypokalaemia [Recovered/Resolved]
  - Hypomagnesaemia [Recovered/Resolved]
  - Hyperalbuminaemia [Not Recovered/Not Resolved]
  - Hypocalcaemia [Not Recovered/Not Resolved]
  - Abdominal pain [Recovered/Resolved]
